FAERS Safety Report 4737850-8 (Version None)
Quarter: 2005Q3

REPORT INFORMATION
  Report Type: 
  Country: None (occurrence: None)
  Receive Date: 20050803
  Receipt Date: 20050711
  Transmission Date: 20060218
  Serious: Yes (Other)
  Sender: FDA-Public Use
  Company Number: USA0507102514

PATIENT
  Age: 27 Year
  Sex: Female

DRUGS (8)
  1. HUMULIN-HUMAN NPH INSULINE (RDNA) (HUMAN INSULIN (RD [Suspect]
     Indication: DIABETES MELLITUS
     Dates: end: 20050301
  2. HUMULIN R [Suspect]
     Indication: DIABETES MELLITUS
     Dates: end: 20050301
  3. REGULAR INSULIN, BEEF [Suspect]
     Indication: DIABETES MELLITUS
  4. REGULAR INSULIN, BEEF [Suspect]
     Indication: DIABETES MELLITUS
  5. ILETIN I [Suspect]
     Indication: DIABETES MELLITUS
  6. REGULAR INSULIN [Suspect]
     Indication: DIABETES MELLITUS
  7. NPH ILETIN I (BEEF-PORK) [Suspect]
     Indication: DIABETES MELLITUS
  8. REGULAR ILETIN II [Suspect]
     Indication: DIABETES MELLITUS

REACTIONS (11)
  - BLINDNESS [None]
  - DIABETIC RETINOPATHY [None]
  - DIALYSIS [None]
  - HYPERSENSITIVITY [None]
  - INDURATION [None]
  - INJECTION SITE URTICARIA [None]
  - RENAL FAILURE [None]
  - SCAR [None]
  - THERAPEUTIC RESPONSE INCREASED [None]
  - URTICARIA [None]
  - VISUAL DISTURBANCE [None]
